FAERS Safety Report 25401956 (Version 1)
Quarter: 2025Q2

REPORT INFORMATION
  Report Type: Spontaneous
  Country: DE (occurrence: DE)
  Receive Date: 20250605
  Receipt Date: 20250605
  Transmission Date: 20250716
  Serious: Yes (Other)
  Sender: CHEPLAPHARM
  Company Number: None

PATIENT
  Sex: Male

DRUGS (2)
  1. QUETIAPINE [Suspect]
     Active Substance: QUETIAPINE
     Dates: start: 20250515
  2. ZOLPIDEM [Suspect]
     Active Substance: ZOLPIDEM TARTRATE
     Dates: start: 20250515

REACTIONS (4)
  - Drug dependence [Unknown]
  - Pallor [Unknown]
  - Feeling jittery [Unknown]
  - Prescription form tampering [Unknown]

NARRATIVE: CASE EVENT DATE: 20250515
